FAERS Safety Report 4413493-0 (Version None)
Quarter: 2004Q3

REPORT INFORMATION
  Report Type: 
  Country: None (occurrence: None)
  Receive Date: 20040728
  Receipt Date: 20040715
  Transmission Date: 20050211
  Serious: Yes (Life-Threatening, Hospitalization, Other)
  Sender: FDA-Public Use
  Company Number: 2004048122

PATIENT
  Sex: Female
  Weight: 81.6475 kg

DRUGS (15)
  1. NEURONTIN [Suspect]
     Indication: PAIN
     Dosage: 900 MG (300 MG, 3 IN 1 D), ORAL
     Route: 048
  2. ALL OTHER THERAPEUTIC PRODUCTS [Suspect]
     Indication: ILL-DEFINED DISORDER
  3. TRAZODONE HCL [Concomitant]
  4. LEVOTHYROXINE SODIUM [Concomitant]
  5. SPIRONOLACTONE [Concomitant]
  6. VENLAFAXINE HCL [Concomitant]
  7. LORAZEPAM [Concomitant]
  8. TOLTERODINE TARTRATE [Concomitant]
  9. WARFARIN (WARFARIN) [Concomitant]
  10. HYDROCODONE BITARTRATE [Concomitant]
  11. RISEDRONATE SODIUM (RISEDRONATE SODIUM) [Concomitant]
  12. ESOMEPRAZOLE (ESOMEPRAZOLE) [Concomitant]
  13. DIAZEPAM [Concomitant]
  14. PREDNISONE [Concomitant]
  15. RISPERDAL [Concomitant]

REACTIONS (12)
  - ASTHENIA [None]
  - COLONIC HAEMORRHAGE [None]
  - DRUG INTERACTION [None]
  - DYSPNOEA [None]
  - EMPHYSEMA [None]
  - FALL [None]
  - FEELING ABNORMAL [None]
  - INFREQUENT BOWEL MOVEMENTS [None]
  - KNEE OPERATION [None]
  - LUNG DISORDER [None]
  - MULTI-ORGAN DISORDER [None]
  - URINARY TRACT DISORDER [None]
